FAERS Safety Report 7049412-0 (Version None)
Quarter: 2010Q4

REPORT INFORMATION
  Report Type: 
  Country: None (occurrence: None)
  Receive Date: 20101018
  Receipt Date: 20101013
  Transmission Date: 20110411
  Serious: No
  Sender: FDA-Public Use
  Company Number: US-PFIZER INC-2010130830

PATIENT
  Sex: Female

DRUGS (1)
  1. CLEOCIN [Suspect]
     Indication: POST PROCEDURAL DISCOMFORT
     Dosage: UNK
     Route: 067

REACTIONS (1)
  - GENITAL INJURY [None]
